FAERS Safety Report 19164797 (Version 1)
Quarter: 2021Q2

REPORT INFORMATION
  Report Type: Spontaneous
  Country: ES (occurrence: ES)
  Receive Date: 20210421
  Receipt Date: 20210421
  Transmission Date: 20210717
  Serious: Yes (Death, Hospitalization)
  Sender: FDA-Public Use
  Company Number: ES-TEVA-2021-ES-1902276

PATIENT
  Age: 66 Year
  Sex: Male

DRUGS (8)
  1. LOPINAVIR/RITONAVIR [Suspect]
     Active Substance: LOPINAVIR\RITONAVIR
     Indication: COVID-19
     Route: 065
     Dates: start: 2020
  2. LINEZOLID. [Suspect]
     Active Substance: LINEZOLID
     Indication: ANTI-INFECTIVE THERAPY
     Route: 065
     Dates: start: 2020
  3. MEROPENEM. [Suspect]
     Active Substance: MEROPENEM
     Indication: ANTI-INFECTIVE THERAPY
     Route: 065
     Dates: start: 2020
  4. CEFTRIAXONE. [Suspect]
     Active Substance: CEFTRIAXONE
     Indication: ANTI-INFECTIVE THERAPY
     Route: 065
     Dates: start: 2020
  5. HYDROXYCHLOROQUINE [Suspect]
     Active Substance: HYDROXYCHLOROQUINE
     Indication: COVID-19
     Route: 065
     Dates: start: 2020
  6. TOCILIZUMAB. [Suspect]
     Active Substance: TOCILIZUMAB
     Indication: ACUTE RESPIRATORY DISTRESS SYNDROME
     Route: 065
     Dates: start: 2020
  7. INTERFERON?BETA?1B [Suspect]
     Active Substance: INTERFERON BETA-1B
     Indication: COVID-19
     Route: 065
     Dates: start: 2020
  8. TRIMETHOPRIM/SULFAMETHOXAZOLE [Suspect]
     Active Substance: SULFAMETHOXAZOLE\TRIMETHOPRIM
     Indication: ANTI-INFECTIVE THERAPY
     Route: 065
     Dates: start: 2020

REACTIONS (3)
  - COVID-19 [Fatal]
  - Bronchopulmonary aspergillosis [Fatal]
  - Off label use [Unknown]

NARRATIVE: CASE EVENT DATE: 2020
